FAERS Safety Report 7909461-4 (Version None)
Quarter: 2011Q4

REPORT INFORMATION
  Report Type: 
  Country: None (occurrence: None)
  Receive Date: 20111111
  Receipt Date: 20111108
  Transmission Date: 20120403
  Serious: Yes (Death)
  Sender: FDA-Public Use
  Company Number: US-BAYER-2011-049639

PATIENT
  Age: 63 Year
  Sex: Male
  Weight: 97.959 kg

DRUGS (10)
  1. SYNTHROID [Concomitant]
     Indication: HYPOTHYROIDISM
     Dosage: DAILY DOSE 225 ?G
     Route: 048
     Dates: start: 20031201, end: 20110608
  2. IBUPROFEN [Concomitant]
     Dosage: 1800 MG
     Route: 048
     Dates: start: 20100923, end: 20110608
  3. LOPERAMIDE HCL [Concomitant]
     Indication: DIARRHOEA
     Dosage: 4 MG
     Route: 048
     Dates: start: 20100408, end: 20100729
  4. SORAFENIB (RAF KINASE INHIBITOR) [Suspect]
     Dosage: 400 MG, BID
     Route: 048
     Dates: start: 20110603, end: 20110607
  5. IBUPROFEN [Concomitant]
     Indication: PALMAR-PLANTAR ERYTHRODYSAESTHESIA SYNDROME
     Dosage: 1800 MG
     Route: 048
     Dates: start: 20100506, end: 20100902
  6. ZANTAC [Concomitant]
     Indication: DYSPEPSIA
     Dosage: DAILY DOSE 150 ?G
     Route: 048
     Dates: start: 19900101, end: 20110608
  7. TPN [Concomitant]
     Indication: SUPPLEMENTATION THERAPY
     Dosage: 1800 MG
     Route: 048
     Dates: start: 20100923, end: 20110608
  8. NEXIUM [Concomitant]
     Indication: DYSPEPSIA
     Dosage: 40 MG
     Route: 048
     Dates: start: 20100902, end: 20110608
  9. SORAFENIB (RAF KINASE INHIBITOR) [Suspect]
     Indication: THYROID CANCER
     Dosage: 400 MG, BID
     Route: 048
     Dates: start: 20110505, end: 20110602
  10. MEN'S MULTI [Concomitant]
     Indication: VITAMIN SUPPLEMENTATION
     Dosage: 1 DF, UNK
     Route: 048
     Dates: start: 20090101, end: 20110608

REACTIONS (3)
  - DEATH [None]
  - MYOCARDIAL INFARCTION [None]
  - HYPERTENSION [None]
